FAERS Safety Report 4751224-5 (Version None)
Quarter: 2005Q3

REPORT INFORMATION
  Report Type: 
  Country: None (occurrence: None)
  Receive Date: 20050824
  Receipt Date: 20050812
  Transmission Date: 20060218
  Serious: Yes (Hospitalization)
  Sender: FDA-Public Use
  Company Number: JP-BRISTOL-MYERS SQUIBB COMPANY-13084926

PATIENT
  Age: 54 Year
  Sex: Female

DRUGS (2)
  1. ENDOXAN [Suspect]
     Indication: OVARIAN CANCER
     Route: 042
     Dates: start: 20050706
  2. CISPLATIN [Suspect]
     Indication: OVARIAN CANCER
     Dates: start: 20050606

REACTIONS (1)
  - RHABDOMYOLYSIS [None]
